FAERS Safety Report 8048747-2 (Version None)
Quarter: 2012Q1

REPORT INFORMATION
  Report Type: 
  Country: None (occurrence: None)
  Receive Date: 20120110
  Receipt Date: 20120104
  Transmission Date: 20120608
  Serious: Yes (Other)
  Sender: FDA-Public Use
  Company Number: AUR-APL-2012-00194

PATIENT
  Age: 82 Year
  Sex: Male
  Weight: 57.5 kg

DRUGS (6)
  1. AMLODIPINE [Concomitant]
  2. LANSOPRAZOLE [Concomitant]
  3. RAMIPRIL [Suspect]
     Indication: HYPERTENSION
     Dosage: (1.25 MG), ORAL
     Route: 048
     Dates: start: 20111116, end: 20111207
  4. ATENOLOL [Concomitant]
  5. ATORVASTATIN [Concomitant]
  6. IRON SULPHATE (FERROUS SULFATE) [Concomitant]

REACTIONS (2)
  - SKIN NECROSIS [None]
  - VASCULITIC RASH [None]
